FAERS Safety Report 8160449-0 (Version None)
Quarter: 2012Q1

REPORT INFORMATION
  Report Type: 
  Country: None (occurrence: None)
  Receive Date: 20120223
  Receipt Date: 20120215
  Transmission Date: 20120608
  Serious: Yes (Other)
  Sender: FDA-Public Use
  Company Number: US-US-EMD SERONO, INC.-7113760

PATIENT
  Sex: Female
  Weight: 64 kg

DRUGS (7)
  1. GABAPENTIN [Concomitant]
  2. CRESTOR [Concomitant]
  3. IBUPROFEN (ADVIL) [Concomitant]
     Indication: BACK PAIN
  4. REBIF [Suspect]
     Indication: PRODUCT USED FOR UNKNOWN INDICATION
     Route: 058
     Dates: start: 20031025, end: 20120111
  5. NAPROXEN [Concomitant]
     Indication: BACK PAIN
  6. TRICOR [Concomitant]
  7. TIZANIDINE HCL [Concomitant]

REACTIONS (2)
  - DIABETES MELLITUS [None]
  - INJECTION SITE HAEMATOMA [None]
